FAERS Safety Report 21014333 (Version 1)
Quarter: 2022Q2

REPORT INFORMATION
  Report Type: Spontaneous
  Country: NL (occurrence: NL)
  Receive Date: 20220627
  Receipt Date: 20220627
  Transmission Date: 20220720
  Serious: Yes (Other)
  Sender: FDA-Public Use
  Company Number: None

PATIENT
  Age: 77 Year
  Sex: Male
  Weight: 86 kg

DRUGS (6)
  1. ATORVASTATIN CALCIUM [Suspect]
     Active Substance: ATORVASTATIN CALCIUM
     Indication: Hypercholesterolaemia
     Dosage: 40 MG, 1X/DAY, 1X PER DAG, TABLET
     Dates: start: 202005
  2. BARNIDIPINE [Concomitant]
     Active Substance: BARNIDIPINE
     Dosage: CAPSULE MET GEREGULEERDE AFGIFTE, 10 MG (MILLIGRAM), MGA
  3. ASPIRIN [Concomitant]
     Active Substance: ASPIRIN
     Dosage: TABLET, 80 MG (MILLIGRAM)
  4. PANTOPRAZOLE [Concomitant]
     Active Substance: PANTOPRAZOLE
     Dosage: POEDER INJECTIEVLOEISTOF, 40 MG (MILLIGRAM), INJECTIEPOEDER
  5. ATENOLOL [Concomitant]
     Active Substance: ATENOLOL
     Dosage: TABLET, 100 MG (MILLIGRAM)
  6. LOSARTAN [Concomitant]
     Active Substance: LOSARTAN
     Dosage: FILMOMHULDE TABLET, 50 MG (MILLIGRAM), FO

REACTIONS (2)
  - Muscle rupture [Recovering/Resolving]
  - Muscle spasms [Unknown]

NARRATIVE: CASE EVENT DATE: 20220531
